FAERS Safety Report 17718768 (Version 1)
Quarter: 2020Q2

REPORT INFORMATION
  Report Type: Spontaneous
  Country: US (occurrence: US)
  Receive Date: 20200428
  Receipt Date: 20200428
  Transmission Date: 20200714
  Serious: Yes (Other)
  Sender: FDA-Public Use
  Company Number: US-PFIZER INC-2020165363

PATIENT
  Age: 35 Year
  Sex: Male

DRUGS (1)
  1. GABAPENTIN. [Suspect]
     Active Substance: GABAPENTIN
     Dosage: 800 MG

REACTIONS (9)
  - Gastric ulcer [Unknown]
  - Aphonia [Unknown]
  - Condition aggravated [Unknown]
  - Gastric dilatation [Unknown]
  - Hallucination [Unknown]
  - Drug dependence [Unknown]
  - Pruritus [Unknown]
  - Muscle twitching [Unknown]
  - Pallor [Unknown]
